FAERS Safety Report 4553041-8 (Version None)
Quarter: 2005Q1

REPORT INFORMATION
  Report Type: 
  Country: None (occurrence: None)
  Receive Date: 20050113
  Receipt Date: 20041231
  Transmission Date: 20050727
  Serious: Yes (Hospitalization)
  Sender: FDA-Public Use
  Company Number: 2005000679

PATIENT
  Age: 23 Year
  Sex: Female

DRUGS (2)
  1. SULFASALAZINE [Suspect]
     Indication: POLYARTHRITIS
     Dosage: 1000 MG (1 IN 1 D), ORAL
     Route: 048
     Dates: start: 20041028, end: 20041125
  2. PREDNISONE [Concomitant]

REACTIONS (8)
  - ABDOMINAL PAIN [None]
  - C-REACTIVE PROTEIN INCREASED [None]
  - COUGH [None]
  - LEUKOPENIA [None]
  - NAUSEA [None]
  - NEUTROPENIA [None]
  - PYREXIA [None]
  - VOMITING [None]
